FAERS Safety Report 7239253-3 (Version None)
Quarter: 2011Q1

REPORT INFORMATION
  Report Type: 
  Country: None (occurrence: None)
  Receive Date: 20110121
  Receipt Date: 20110118
  Transmission Date: 20110831
  Serious: No
  Sender: FDA-Public Use
  Company Number: US-PFIZER INC-2011014169

PATIENT
  Sex: Female

DRUGS (1)
  1. ADVIL [Suspect]
     Indication: SLEEP DISORDER
     Dosage: 2 TABLETS NIGHTLY
     Route: 048
     Dates: start: 20101201, end: 20110117

REACTIONS (1)
  - DRUG INEFFECTIVE [None]
